FAERS Safety Report 24710415 (Version 2)
Quarter: 2024Q4

REPORT INFORMATION
  Report Type: Spontaneous
  Country: GB (occurrence: GB)
  Receive Date: 20241209
  Receipt Date: 20241211
  Transmission Date: 20250115
  Serious: Yes (Other)
  Sender: NOVARTIS
  Company Number: GB-002147023-NVSC2024GB230661

PATIENT
  Sex: Female

DRUGS (1)
  1. TASIGNA [Suspect]
     Active Substance: NILOTINIB
     Indication: Leukaemia
     Dosage: 2 DOSAGE FORM, QD (400 MG), CAP 112
     Route: 048

REACTIONS (3)
  - Cerebral thrombosis [Unknown]
  - Tinnitus [Unknown]
  - COVID-19 [Unknown]
